FAERS Safety Report 5152412-9 (Version None)
Quarter: 2006Q4

REPORT INFORMATION
  Report Type: 
  Country: None (occurrence: None)
  Receive Date: 20061116
  Receipt Date: 20060601
  Transmission Date: 20070319
  Serious: Yes (Hospitalization)
  Sender: FDA-Public Use
  Company Number: US-ELI_LILLY_AND_COMPANY-US200608006001

PATIENT
  Age: 50 Year
  Sex: Female
  Weight: 58.956 kg

DRUGS (3)
  1. MIRTAZAPINE [Concomitant]
     Dates: start: 19990901, end: 20050501
  2. PAROXETINE HCL [Concomitant]
     Dates: start: 19990201, end: 20030301
  3. ZYPREXA [Suspect]
     Dates: start: 19980101, end: 19990101

REACTIONS (2)
  - CARDIAC DISORDER [None]
  - DIABETES MELLITUS [None]
